FAERS Safety Report 13517542 (Version 1)
Quarter: 2017Q2

REPORT INFORMATION
  Report Type: Spontaneous
  Country: PH (occurrence: PH)
  Receive Date: 20170505
  Receipt Date: 20170505
  Transmission Date: 20170830
  Serious: Yes (Other)
  Sender: FDA-Public Use
  Company Number: PH-JNJFOC-20170430065

PATIENT

DRUGS (11)
  1. HYDROCORTISONE. [Suspect]
     Active Substance: HYDROCORTISONE
     Indication: ACUTE LYMPHOCYTIC LEUKAEMIA
     Route: 037
  2. DOXORUBICIN HYDROCHLORIDE. [Suspect]
     Active Substance: DOXORUBICIN HYDROCHLORIDE
     Indication: ACUTE LYMPHOCYTIC LEUKAEMIA
     Route: 042
  3. MERCAPTOPURINE. [Suspect]
     Active Substance: MERCAPTOPURINE
     Indication: ACUTE LYMPHOCYTIC LEUKAEMIA
     Dosage: EARLY INTENSIFICATION DAYS 36-62, CONSOLIDATION DAYS 0-56
     Route: 048
  4. METHOTREXATE. [Suspect]
     Active Substance: METHOTREXATE
     Indication: ACUTE LYMPHOCYTIC LEUKAEMIA
     Route: 065
  5. L-ASPARAGINASE [Suspect]
     Active Substance: ASPARAGINASE
     Indication: ACUTE LYMPHOCYTIC LEUKAEMIA
     Route: 042
  6. VINCRISTINE [Suspect]
     Active Substance: VINCRISTINE
     Indication: ACUTE LYMPHOCYTIC LEUKAEMIA
     Dosage: INDUCTION: DAYS 8,15,22,29,
     Route: 065
  7. ARA-C [Suspect]
     Active Substance: CYTARABINE
     Indication: ACUTE LYMPHOCYTIC LEUKAEMIA
     Dosage: DAYS 38-41, 45-48,52-55, 59-62 INTRAVENOUS??DAYS 45 AND 59 INTRATHECAL
     Route: 065
  8. PREDNISOLONE. [Suspect]
     Active Substance: PREDNISOLONE
     Indication: ACUTE LYMPHOCYTIC LEUKAEMIA
     Dosage: DAYS 1-29
     Route: 065
  9. DEXAMETHASONE. [Suspect]
     Active Substance: DEXAMETHASONE
     Indication: ACUTE LYMPHOCYTIC LEUKAEMIA
     Dosage: DAYS 1-28, TAPERED??TO 5MG/M2 DAYS 29-31 AND 2.5 MG/M2 DAYS 32-35
     Route: 048
  10. L-ASPARAGINASE [Suspect]
     Active Substance: ASPARAGINASE
     Indication: ACUTE LYMPHOCYTIC LEUKAEMIA
     Dosage: DAY 11 Q 3 D??FOR 8 DOSES
     Route: 042
  11. CYCLOPHOSPHAMIDE. [Suspect]
     Active Substance: CYCLOPHOSPHAMIDE
     Indication: ACUTE LYMPHOCYTIC LEUKAEMIA
     Dosage: EARLY INTENSIFICATION:1G/M2 DAYS 36, 64
     Route: 065

REACTIONS (13)
  - Pneumonia [Unknown]
  - Stomatitis [Unknown]
  - Nervous system disorder [Unknown]
  - Hypersensitivity [Unknown]
  - Sepsis [Unknown]
  - Product use in unapproved indication [Unknown]
  - Varicella [Unknown]
  - Febrile neutropenia [Unknown]
  - Off label use [Unknown]
  - Haemorrhagic disorder [Unknown]
  - Hepatitis [Unknown]
  - Osteonecrosis [Unknown]
  - Tuberculosis [Unknown]
